FAERS Safety Report 5487980-0 (Version None)
Quarter: 2007Q4

REPORT INFORMATION
  Report Type: 
  Country: None (occurrence: None)
  Receive Date: 20071012
  Receipt Date: 20071012
  Transmission Date: 20080405
  Serious: Yes (Hospitalization)
  Sender: FDA-Public Use
  Company Number: None

PATIENT
  Sex: Female
  Weight: 81.6475 kg

DRUGS (1)
  1. ATENOLOL [Suspect]
     Indication: HYPERTENSION
     Dosage: 1 TABLET PER DAY PO
     Route: 048
     Dates: start: 20060917, end: 20061017

REACTIONS (7)
  - AGITATION [None]
  - ANXIETY [None]
  - DEPRESSION [None]
  - FATIGUE [None]
  - HALLUCINATION [None]
  - UNEVALUABLE EVENT [None]
  - VISUAL FIELD DEFECT [None]
